FAERS Safety Report 25060116 (Version 1)
Quarter: 2025Q1

REPORT INFORMATION
  Report Type: Spontaneous
  Country: SA (occurrence: SA)
  Receive Date: 20250310
  Receipt Date: 20250310
  Transmission Date: 20250409
  Serious: Yes (Hospitalization)
  Sender: BIOMARIN
  Company Number: SA-BIOMARINAP-SA-2025-164436

PATIENT

DRUGS (1)
  1. NAGLAZYME [Suspect]
     Active Substance: GALSULFASE
     Indication: Mucopolysaccharidosis VI
     Route: 065

REACTIONS (5)
  - Obstructive airways disorder [Unknown]
  - Tongue oedema [Unknown]
  - Tonsillitis [Unknown]
  - Pulmonary malformation [Unknown]
  - Gas poisoning [Unknown]
